FAERS Safety Report 5390037-0 (Version None)
Quarter: 2007Q3

REPORT INFORMATION
  Report Type: 
  Country: None (occurrence: None)
  Receive Date: 20070718
  Receipt Date: 20070710
  Transmission Date: 20080115
  Serious: Yes (Hospitalization)
  Sender: FDA-Public Use
  Company Number: GB-ABBOTT-07P-167-0374411-00

PATIENT
  Age: 41 Year
  Sex: Female

DRUGS (1)
  1. REDUCTIL 10MG [Suspect]
     Indication: OBESITY
     Dates: start: 20070508, end: 20070612

REACTIONS (4)
  - FACE INJURY [None]
  - FALL [None]
  - HEADACHE [None]
  - LOSS OF CONSCIOUSNESS [None]
